FAERS Safety Report 4369071-5 (Version None)
Quarter: 2004Q2

REPORT INFORMATION
  Report Type: 
  Country: None (occurrence: None)
  Receive Date: 20040528
  Receipt Date: 20040518
  Transmission Date: 20050107
  Serious: Yes (Other)
  Sender: FDA-Public Use
  Company Number: 2004202448GB

PATIENT
  Age: 60 Year
  Sex: Female
  Weight: 66.3 kg

DRUGS (4)
  1. SULFASALAZINE [Suspect]
     Indication: RHEUMATOID ARTHRITIS
     Dosage: 500 MG, QD, ORAL
     Route: 048
  2. FOSAMAX [Concomitant]
  3. CALCICHEW [Concomitant]
  4. CELEBREX [Concomitant]

REACTIONS (5)
  - ARRHYTHMIA [None]
  - CONVULSION [None]
  - DISORIENTATION [None]
  - INCONTINENCE [None]
  - LOSS OF CONSCIOUSNESS [None]
